FAERS Safety Report 16836102 (Version 1)
Quarter: 2019Q3

REPORT INFORMATION
  Report Type: Spontaneous
  Country: US (occurrence: US)
  Receive Date: 20190921
  Receipt Date: 20190921
  Transmission Date: 20191005
  Serious: Yes (Other)
  Sender: FDA-Public Use
  Company Number: US-SHILPA MEDICARE LIMITED-SML-US-2019-00204

PATIENT
  Age: 38 Year
  Sex: Male

DRUGS (22)
  1. OXALIPLATIN. [Suspect]
     Active Substance: OXALIPLATIN
     Indication: RECTAL CANCER
     Route: 065
  2. RADIATION THERAPY [Suspect]
     Active Substance: RADIATION THERAPY
     Dosage: MAXIMUM LIMIT OF CGY OF FEMORAL HEADS WAS 3707 POINTS
     Route: 065
  3. RADIATION THERAPY [Suspect]
     Active Substance: RADIATION THERAPY
     Dosage: PLANNED FRACTIONS WAS 27
  4. RADIATION THERAPY [Suspect]
     Active Substance: RADIATION THERAPY
     Dosage: GROSS TARGET VOLUME (GTV) RECTAL SHOWED 94.3
     Route: 065
  5. RADIATION THERAPY [Suspect]
     Active Substance: RADIATION THERAPY
     Dosage: PATIENT BLADDER SQUARE 45 PERCENT WAS 21
     Route: 065
  6. RADIATION THERAPY [Suspect]
     Active Substance: RADIATION THERAPY
     Dosage: MAXIMUM LIMIT OF CGY OF BLADDER SQUARE WAS 5225 POINTS
     Route: 065
  7. RADIATION THERAPY [Suspect]
     Active Substance: RADIATION THERAPY
     Dosage: SMALL BOWEL SQUARE 50 PERCENT WAS 15
     Route: 065
  8. CAPECITABINE, UNKNOWN [Suspect]
     Active Substance: CAPECITABINE
     Indication: RECTAL CANCER
     Route: 065
  9. RADIATION THERAPY [Suspect]
     Active Substance: RADIATION THERAPY
     Dosage: SMALL BOWEL V45 WAS 20
     Route: 065
  10. RADIATION THERAPY [Suspect]
     Active Substance: RADIATION THERAPY
     Dosage: CUMULATIVE TOTAL DOSE (CGY) WAS 5400 CGY
     Route: 065
  11. RADIATION THERAPY [Suspect]
     Active Substance: RADIATION THERAPY
     Dosage: GROSS TARGET VOLUME (GTV LN) SHOWED 2.9
     Route: 065
  12. RADIATION THERAPY [Suspect]
     Active Substance: RADIATION THERAPY
     Dosage: MAXIMUM DOSE TO PTV BOOST WAS 5810 CGY
     Route: 065
  13. RADIATION THERAPY [Suspect]
     Active Substance: RADIATION THERAPY
     Indication: RECTAL CANCER
     Dosage: RECTUM IORT (INTRAOPERATIVE RADIATION THERAPY) WAS 5445 CGY
     Route: 065
  14. RADIATION THERAPY [Suspect]
     Active Substance: RADIATION THERAPY
     Dosage: SMALL BOWEL V30 WAS 57 PERCENT
     Route: 065
  15. RADIATION THERAPY [Suspect]
     Active Substance: RADIATION THERAPY
     Dosage: PATIENT FEMORAL HEADS SQUARE 45 PERCENT WAS 0
     Route: 065
  16. RADIATION THERAPY [Suspect]
     Active Substance: RADIATION THERAPY
     Dosage: PLANNING TARGET VOLUME (PTV) BOOST DATA INCLUDES D98 PERCENT WAS 99 AND D95 PERCENT WAS 100.
     Route: 065
  17. RADIATION THERAPY [Suspect]
     Active Substance: RADIATION THERAPY
     Dosage: PLANNING TARGET VOLUME (PTV) WAS 76.6
     Route: 065
  18. RADIATION THERAPY [Suspect]
     Active Substance: RADIATION THERAPY
     Dosage: MAXIMUM LIMIT OF CGY OF SMALL BOWEL WAS 5556 POINTS
     Route: 065
  19. RADIATION THERAPY [Suspect]
     Active Substance: RADIATION THERAPY
     Dosage: MEAN DOSE TO PLANNING TARGET VOLUME (PTV) BOOST WAS 5480 CGY
     Route: 065
  20. RADIATION THERAPY [Suspect]
     Active Substance: RADIATION THERAPY
     Dosage: SMALL BOWEL V45 (CC) WAS 113
     Route: 065
  21. RADIATION THERAPY [Suspect]
     Active Substance: RADIATION THERAPY
     Dosage: MINIMUM DOSE TO PTV BOOST WAS 5178 CGY
     Route: 065
  22. RADIATION THERAPY [Suspect]
     Active Substance: RADIATION THERAPY
     Dosage: SMALL BOWEL DOSE CONSTRAINTS INCLUDE THE PATIENT ABSOLUTE VOLUME CONSTRAINT DOSE LIMIT WAS 1500 CGY
     Route: 065

REACTIONS (1)
  - Proctitis [Unknown]
